FAERS Safety Report 5089655-9 (Version None)
Quarter: 2006Q3

REPORT INFORMATION
  Report Type: 
  Country: None (occurrence: None)
  Receive Date: 20060822
  Receipt Date: 20060801
  Transmission Date: 20061208
  Serious: Yes (Other)
  Sender: FDA-Public Use
  Company Number: 2006BH012348

PATIENT
  Age: 4 Year

DRUGS (2)
  1. IVEEGAM [Suspect]
     Indication: KAWASAKI'S DISEASE
  2. REMICADE [Concomitant]

REACTIONS (1)
  - DRUG INEFFECTIVE [None]
